FAERS Safety Report 4898606-9 (Version None)
Quarter: 2006Q1

REPORT INFORMATION
  Report Type: 
  Country: None (occurrence: None)
  Receive Date: 20060127
  Receipt Date: 20060117
  Transmission Date: 20060701
  Serious: Yes (Other)
  Sender: FDA-Public Use
  Company Number: BMRN-2006-005

PATIENT
  Age: 67 Year
  Sex: Female

DRUGS (1)
  1. ORAPRED (PREDNISOLONE SODIUM PHOSPHATE) SOLUTION (EXCEPT SYRUP), 20.2M [Suspect]
     Dosage: 20.2 MG PER 5 ML

REACTIONS (2)
  - DEHYDRATION [None]
  - EMBOLISM VENOUS [None]
